FAERS Safety Report 24180400 (Version 3)
Quarter: 2024Q3

REPORT INFORMATION
  Report Type: Spontaneous
  Country: US (occurrence: US)
  Receive Date: 20240806
  Receipt Date: 20240923
  Transmission Date: 20241016
  Serious: No
  Sender: SANOFI AVENTIS
  Company Number: US-SA-SAC20240805000050

PATIENT
  Age: 73 Year
  Sex: Female
  Weight: 105 kg

DRUGS (58)
  1. DUPIXENT [Suspect]
     Active Substance: DUPILUMAB
     Indication: Asthma
     Dosage: 600 MG, 1X
     Route: 058
     Dates: start: 20240801, end: 20240801
  2. DUPIXENT [Suspect]
     Active Substance: DUPILUMAB
     Dosage: 300 MG
     Dates: start: 2024, end: 2024
  3. ONDANSETRON [Suspect]
     Active Substance: ONDANSETRON
     Indication: Nausea
  4. ALBUTEROL SULFATE [Concomitant]
     Active Substance: ALBUTEROL SULFATE
  5. ARIPIPRAZOLE [Concomitant]
     Active Substance: ARIPIPRAZOLE
  6. BUPROPION HYDROCHLORIDE [Concomitant]
     Active Substance: BUPROPION HYDROCHLORIDE
  7. CELECOXIB [Concomitant]
     Active Substance: CELECOXIB
  8. CLONAZEPAM [Concomitant]
     Active Substance: CLONAZEPAM
  9. FAMOTIDINE [Concomitant]
     Active Substance: FAMOTIDINE
  10. GABAPENTIN [Concomitant]
     Active Substance: GABAPENTIN
  11. LAMOTRIGINE [Concomitant]
     Active Substance: LAMOTRIGINE
  12. LIOTHYRONINE [Concomitant]
     Active Substance: LIOTHYRONINE
  13. LUBIPROSTONE [Concomitant]
     Active Substance: LUBIPROSTONE
  14. MODAFINIL [Concomitant]
     Active Substance: MODAFINIL
  15. MONTELUKAST [Concomitant]
     Active Substance: MONTELUKAST SODIUM
  16. MYRBETRIQ [Concomitant]
     Active Substance: MIRABEGRON
  17. PANTOPRAZOLE [Concomitant]
     Active Substance: PANTOPRAZOLE
  18. RINVOQ [Concomitant]
     Active Substance: UPADACITINIB
  19. VALACYCLOVIR [Concomitant]
     Active Substance: VALACYCLOVIR HYDROCHLORIDE
  20. PREZISTA [Concomitant]
     Active Substance: DARUNAVIR ETHANOLATE
  21. BETAMETHASONE [Concomitant]
     Active Substance: BETAMETHASONE
  22. DROPERIDOL\FENTANYL [Concomitant]
     Active Substance: DROPERIDOL\FENTANYL
  23. CLONAZEPAM [Concomitant]
     Active Substance: CLONAZEPAM
  24. GRALISE [Concomitant]
     Active Substance: GABAPENTIN
  25. METHOCARBAMOL [Concomitant]
     Active Substance: METHOCARBAMOL
  26. OXYCODONE AND ACETAMINOPHEN [Concomitant]
     Active Substance: ACETAMINOPHEN\OXYCODONE HYDROCHLORIDE
  27. MODAFINIL [Concomitant]
     Active Substance: MODAFINIL
  28. TAMIFLU [Concomitant]
     Active Substance: OSELTAMIVIR PHOSPHATE
  29. ABILIFY [Concomitant]
     Active Substance: ARIPIPRAZOLE
  30. FLUCONAZOLE [Concomitant]
     Active Substance: FLUCONAZOLE
  31. FOLIC ACID [Concomitant]
     Active Substance: FOLIC ACID
  32. ONDANSETRON HYDROCHLORIDE [Concomitant]
     Active Substance: ONDANSETRON HYDROCHLORIDE
  33. ELMIRON [Concomitant]
     Active Substance: PENTOSAN POLYSULFATE SODIUM
  34. LEVOTHYROXINE SODIUM [Concomitant]
     Active Substance: LEVOTHYROXINE SODIUM
  35. PREDNISONE [Concomitant]
     Active Substance: PREDNISONE
  36. HYDROMORPHONE [Concomitant]
     Active Substance: HYDROMORPHONE
  37. METHOCARBAMOL [Concomitant]
     Active Substance: METHOCARBAMOL
  38. LEVOTHYROXINE [Concomitant]
     Active Substance: LEVOTHYROXINE\LEVOTHYROXINE SODIUM
  39. LAMOTRIGINE [Concomitant]
     Active Substance: LAMOTRIGINE
  40. EPIPEN JR [Concomitant]
     Active Substance: EPINEPHRINE
  41. LAMOTRIGINE [Concomitant]
     Active Substance: LAMOTRIGINE
  42. ARIPIPRAZOLE [Concomitant]
     Active Substance: ARIPIPRAZOLE
  43. VALACYCLOVIR [Concomitant]
     Active Substance: VALACYCLOVIR HYDROCHLORIDE
  44. GABAPENTIN [Concomitant]
     Active Substance: GABAPENTIN
  45. BETAMETHASONE [Concomitant]
     Active Substance: BETAMETHASONE
  46. PREDNISONE [Concomitant]
     Active Substance: PREDNISONE
  47. LUBIPROSTONE [Concomitant]
     Active Substance: LUBIPROSTONE
  48. RINVOQ [Concomitant]
     Active Substance: UPADACITINIB
  49. MODAFINIL [Concomitant]
     Active Substance: MODAFINIL
  50. FOLIC ACID [Concomitant]
     Active Substance: FOLIC ACID
  51. MYRBETRIQ [Concomitant]
     Active Substance: MIRABEGRON
  52. BUPROPION HYDROCHLORIDE [Concomitant]
     Active Substance: BUPROPION HYDROCHLORIDE
  53. ZYRTEC [Concomitant]
     Active Substance: CETIRIZINE HYDROCHLORIDE
  54. METHOCARBAMOL [Concomitant]
     Active Substance: METHOCARBAMOL
  55. CLONAZEPAM [Concomitant]
     Active Substance: CLONAZEPAM
  56. CELECOXIB [Concomitant]
     Active Substance: CELECOXIB
  57. FLUCONAZOLE [Concomitant]
     Active Substance: FLUCONAZOLE
  58. LEVOTHYROXINE [Concomitant]
     Active Substance: LEVOTHYROXINE\LEVOTHYROXINE SODIUM

REACTIONS (6)
  - Musculoskeletal stiffness [Unknown]
  - Tinnitus [Unknown]
  - Headache [Unknown]
  - Nausea [Recovering/Resolving]
  - Muscle spasms [Recovering/Resolving]
  - Burning sensation [Recovering/Resolving]

NARRATIVE: CASE EVENT DATE: 20240801
